FAERS Safety Report 21313695 (Version 1)
Quarter: 2022Q3

REPORT INFORMATION
  Report Type: Other
  Country: US (occurrence: US)
  Receive Date: 20220909
  Receipt Date: 20220909
  Transmission Date: 20221027
  Serious: No
  Sender: FDA-Public Use
  Company Number: US-LEADIANT BIOSCIENCES INC-2021STPI000285

PATIENT
  Sex: Male

DRUGS (1)
  1. MATULANE [Suspect]
     Active Substance: PROCARBAZINE HYDROCHLORIDE
     Indication: Non-Hodgkin^s lymphoma
     Dosage: 50 MILLIGRAM, TAKE 4 CAPSULES (200 MG TOTAL), DAILY ON OCTOBER 11, 12, AND 13 TO COMPLETE CYCLE DAYS
     Route: 048
     Dates: start: 20210904

REACTIONS (1)
  - Product dose omission issue [Unknown]
